FAERS Safety Report 13454894 (Version 1)
Quarter: 2017Q2

REPORT INFORMATION
  Report Type: Spontaneous
  Country: US (occurrence: US)
  Receive Date: 20170418
  Receipt Date: 20170418
  Transmission Date: 20170830
  Serious: No
  Sender: FDA-Public Use
  Company Number: US-PFIZER INC-2017161038

PATIENT
  Age: 61 Year
  Sex: Female

DRUGS (30)
  1. PHENYLEPHRINE [Suspect]
     Active Substance: PHENYLEPHRINE\PHENYLEPHRINE HYDROCHLORIDE
     Dosage: UNK
  2. BACTRIM [Suspect]
     Active Substance: SULFAMETHOXAZOLE\TRIMETHOPRIM
     Dosage: UNK
  3. FLAGYL [Suspect]
     Active Substance: METRONIDAZOLE\METRONIDAZOLE HYDROCHLORIDE
     Dosage: UNK
  4. OXYBUTYNIN HCL [Suspect]
     Active Substance: OXYBUTYNIN
     Dosage: UNK
  5. ERYTHROMYCIN. [Suspect]
     Active Substance: ERYTHROMYCIN
     Dosage: UNK
  6. PROZAC [Suspect]
     Active Substance: FLUOXETINE HYDROCHLORIDE
     Dosage: UNK
  7. LEVAQUIN [Suspect]
     Active Substance: LEVOFLOXACIN
     Dosage: UNK
  8. CELEXA [Suspect]
     Active Substance: CITALOPRAM HYDROBROMIDE
     Dosage: UNK
  9. CIPROFLOXACIN. [Suspect]
     Active Substance: CIPROFLOXACIN
     Dosage: UNK
  10. ZOLOFT [Suspect]
     Active Substance: SERTRALINE HYDROCHLORIDE
     Dosage: UNK
  11. NYSTATIN. [Suspect]
     Active Substance: NYSTATIN
     Dosage: UNK
  12. ASPIRIN. [Suspect]
     Active Substance: ASPIRIN
     Dosage: UNK
  13. DURAGESIC [Suspect]
     Active Substance: FENTANYL
     Dosage: UNK
  14. HYDROCODONE [Suspect]
     Active Substance: HYDROCODONE
     Dosage: UNK
  15. ZYRTEC [Suspect]
     Active Substance: CETIRIZINE HYDROCHLORIDE
     Dosage: UNK
  16. DEXTROMETHORPHAN HYDROBROMIDE. [Suspect]
     Active Substance: DEXTROMETHORPHAN HYDROBROMIDE
     Dosage: UNK
  17. MACROBID [Suspect]
     Active Substance: NITROFURANTOIN\NITROFURANTOIN MONOHYDRATE
     Dosage: UNK
  18. WELLBUTRIN [Suspect]
     Active Substance: BUPROPION HYDROCHLORIDE
     Dosage: UNK
  19. NEXIUM [Suspect]
     Active Substance: ESOMEPRAZOLE MAGNESIUM
     Dosage: UNK
  20. PHENYLPROPANOLAMINE [Suspect]
     Active Substance: PHENYLPROPANOLAMINE
     Dosage: UNK
  21. POLYETHYLENE GLYCOL [Suspect]
     Active Substance: POLYETHYLENE GLYCOLS
     Dosage: UNK
  22. MAGNESIUM CITRATE. [Suspect]
     Active Substance: MAGNESIUM CITRATE
     Dosage: UNK
  23. BUDESONIDE. [Suspect]
     Active Substance: BUDESONIDE
     Dosage: UNK
  24. DULERA [Suspect]
     Active Substance: FORMOTEROL FUMARATE DIHYDRATE\MOMETASONE FUROATE
     Dosage: UNK
  25. QVAR [Suspect]
     Active Substance: BECLOMETHASONE DIPROPIONATE
     Dosage: UNK
  26. KLONOPIN [Suspect]
     Active Substance: CLONAZEPAM
     Dosage: UNK
  27. PAXIL [Suspect]
     Active Substance: PAROXETINE HYDROCHLORIDE
     Dosage: UNK
  28. CODEINE [Suspect]
     Active Substance: CODEINE
     Dosage: UNK
  29. BUSPAR [Suspect]
     Active Substance: BUSPIRONE HYDROCHLORIDE
     Dosage: UNK
  30. SERZONE [Suspect]
     Active Substance: NEFAZODONE HYDROCHLORIDE
     Dosage: UNK

REACTIONS (1)
  - Drug hypersensitivity [Unknown]
